FAERS Safety Report 24399703 (Version 1)
Quarter: 2024Q4

REPORT INFORMATION
  Report Type: Other
  Country: US (occurrence: US)
  Receive Date: 20241005
  Receipt Date: 20241005
  Transmission Date: 20250115
  Serious: Yes (Other)
  Sender: ACI HEALTHCARE
  Company Number: US-ACI HealthCare Limited-2162516

PATIENT
  Age: 65 Year

DRUGS (6)
  1. DONEPEZIL HYDROCHLORIDE [Suspect]
     Active Substance: DONEPEZIL HYDROCHLORIDE
     Indication: Product used for unknown indication
  2. NORDAZEPAM [Concomitant]
     Active Substance: NORDAZEPAM
  3. MEMANTINE [Concomitant]
     Active Substance: MEMANTINE
  4. DESMETRAMADOL [Concomitant]
     Active Substance: DESMETRAMADOL
  5. TRAMADOL [Concomitant]
     Active Substance: TRAMADOL
  6. DULOXETINE [Concomitant]
     Active Substance: DULOXETINE

REACTIONS (2)
  - Toxicity to various agents [Unknown]
  - Overdose [Unknown]
